FAERS Safety Report 10737130 (Version 4)
Quarter: 2015Q3

REPORT INFORMATION
  Report Type: Spontaneous
  Country: US (occurrence: US)
  Receive Date: 20150126
  Receipt Date: 20150817
  Transmission Date: 20151125
  Serious: Yes (Other)
  Sender: FDA-Public Use
  Company Number: US-CELGENEUS-USA-2014113880

PATIENT
  Sex: Male

DRUGS (2)
  1. THALOMID [Suspect]
     Active Substance: THALIDOMIDE
     Indication: INTERSTITIAL LUNG DISEASE
     Route: 048
     Dates: start: 201308, end: 2014
  2. THALOMID [Suspect]
     Active Substance: THALIDOMIDE
     Route: 048

REACTIONS (3)
  - Hypoaesthesia [Unknown]
  - Joint lock [Unknown]
  - Paraesthesia [Unknown]
